FAERS Safety Report 5118121-7 (Version None)
Quarter: 2006Q3

REPORT INFORMATION
  Report Type: 
  Country: None (occurrence: None)
  Receive Date: 20060928
  Receipt Date: 20060928
  Transmission Date: 20061208
  Serious: Yes (Other)
  Sender: FDA-Public Use
  Company Number: None

PATIENT
  Age: 67 Year
  Sex: Male
  Weight: 130.1823 kg

DRUGS (7)
  1. ADRIAMYCIN PFS [Suspect]
     Dosage: 75 MG/M2
     Dates: start: 20060829, end: 20060831
  2. IFOSFAMIDE [Concomitant]
     Dosage: 2.5MG/M2
     Dates: start: 20060829, end: 20060831
  3. ATENOLOL [Concomitant]
  4. HYDROCHLOROTHIAZDE TAB [Concomitant]
  5. LISINOPRIL [Concomitant]
  6. KYTRIL [Concomitant]
  7. DEXAMETHASONE TAB [Concomitant]

REACTIONS (9)
  - BRAIN SCAN ABNORMAL [None]
  - CEREBRAL ISCHAEMIA [None]
  - COORDINATION ABNORMAL [None]
  - DYSARTHRIA [None]
  - FATIGUE [None]
  - PARAESTHESIA [None]
  - SARCOMA [None]
  - STRESS [None]
  - VOCAL CORD DISORDER [None]
